FAERS Safety Report 9197179 (Version 1)
Quarter: 2013Q1

REPORT INFORMATION
  Report Type: Spontaneous
  Country: FR (occurrence: FR)
  Receive Date: 20130328
  Receipt Date: 20130328
  Transmission Date: 20140127
  Serious: Yes (Hospitalization)
  Sender: FDA-Public Use
  Company Number: FR-PFIZER INC-2013095468

PATIENT
  Age: 56 Year
  Sex: Male

DRUGS (11)
  1. DALACINE [Suspect]
     Indication: BRAIN ABSCESS
     Dosage: 300 MG, 3X/DAY
     Route: 048
     Dates: start: 201102, end: 20111207
  2. ROCEPHINE [Suspect]
     Indication: BRAIN ABSCESS
     Dosage: 1 G, 1X/DAY
     Route: 042
     Dates: start: 201102, end: 20111207
  3. MOTILIUM [Concomitant]
     Dosage: UNK
  4. FORLAX [Concomitant]
     Dosage: UNK
  5. PARIET [Concomitant]
     Dosage: UNK
  6. LYRICA [Concomitant]
     Dosage: UNK
  7. LAROXYL [Concomitant]
     Dosage: UNK
  8. RIVOTRIL [Concomitant]
     Dosage: UNK
  9. LOVENOX [Concomitant]
     Dosage: UNK
  10. TOPALGIC [Concomitant]
     Dosage: UNK
  11. VIRLIX [Concomitant]
     Dosage: UNK

REACTIONS (1)
  - Parapsoriasis [Recovered/Resolved]
